FAERS Safety Report 11719901 (Version 2)
Quarter: 2015Q4

REPORT INFORMATION
  Report Type: Report from Study
  Country: FR (occurrence: FR)
  Receive Date: 20151110
  Receipt Date: 20151201
  Transmission Date: 20160304
  Serious: Yes (Other)
  Sender: FDA-Public Use
  Company Number: FR-ROCHE-1655487

PATIENT
  Age: 74 Year
  Sex: Male
  Weight: 87 kg

DRUGS (17)
  1. UROREC [Concomitant]
     Active Substance: SILODOSIN
     Indication: CARDIAC DISORDER
  2. INEXIUM [Concomitant]
     Active Substance: ESOMEPRAZOLE
     Indication: CARDIAC DISORDER
  3. CARDENSIEL [Concomitant]
     Active Substance: BISOPROLOL FUMARATE
     Indication: HYPERTENSION
     Route: 048
  4. CARDENSIEL [Concomitant]
     Active Substance: BISOPROLOL FUMARATE
     Indication: CARDIAC DISORDER
  5. VEMURAFENIB [Suspect]
     Active Substance: VEMURAFENIB
     Indication: MALIGNANT MELANOMA
     Route: 048
     Dates: start: 20150918
  6. VEMURAFENIB [Suspect]
     Active Substance: VEMURAFENIB
     Dosage: LAST DOSE: 1440 MG/DAY
     Route: 048
     Dates: end: 20151007
  7. CANDESARTAN [Concomitant]
     Active Substance: CANDESARTAN
     Indication: HYPERTENSION
     Route: 048
  8. TAHOR [Concomitant]
     Active Substance: ATORVASTATIN CALCIUM
     Indication: CARDIAC DISORDER
  9. TAHOR [Concomitant]
     Active Substance: ATORVASTATIN CALCIUM
     Indication: HYPERTENSION
     Route: 048
  10. LOXEN (FRANCE) [Concomitant]
     Active Substance: NICARDIPINE HYDROCHLORIDE
     Indication: CARDIAC DISORDER
  11. SOLU-MEDROL [Concomitant]
     Active Substance: METHYLPREDNISOLONE SODIUM SUCCINATE
     Indication: HYPERTENSION
     Route: 048
  12. CANDESARTAN [Concomitant]
     Active Substance: CANDESARTAN
     Indication: CARDIAC DISORDER
  13. COBIMETINIB [Suspect]
     Active Substance: COBIMETINIB
     Indication: MALIGNANT MELANOMA
     Dosage: LAST DOSE: 60 MG/DAY
     Route: 048
     Dates: start: 20150918, end: 20151007
  14. INEXIUM [Concomitant]
     Active Substance: ESOMEPRAZOLE
     Indication: HYPERTENSION
     Route: 048
  15. UROREC [Concomitant]
     Active Substance: SILODOSIN
     Indication: HYPERTENSION
     Route: 048
  16. SOLU-MEDROL [Concomitant]
     Active Substance: METHYLPREDNISOLONE SODIUM SUCCINATE
     Indication: CARDIAC DISORDER
  17. LOXEN (FRANCE) [Concomitant]
     Active Substance: NICARDIPINE HYDROCHLORIDE
     Indication: HYPERTENSION
     Route: 048

REACTIONS (1)
  - Renal failure [Recovering/Resolving]

NARRATIVE: CASE EVENT DATE: 20150922
